FAERS Safety Report 10560417 (Version 1)
Quarter: 2014Q4

REPORT INFORMATION
  Report Type: Spontaneous
  Country: NO (occurrence: NO)
  Receive Date: 20141103
  Receipt Date: 20141103
  Transmission Date: 20150529
  Serious: Yes (Hospitalization)
  Sender: FDA-Public Use
  Company Number: NO-009507513-1410NOR014083

PATIENT
  Age: 52 Year
  Sex: Male

DRUGS (1)
  1. TIMOTHY, STANDARDIZED [Suspect]
     Active Substance: PHLEUM PRATENSE POLLEN
     Indication: PRODUCT USED FOR UNKNOWN INDICATION
     Dosage: UNK, UNKNOWN
     Route: 048
     Dates: start: 20140822, end: 20140903

REACTIONS (2)
  - Swollen tongue [Recovered/Resolved]
  - Mouth swelling [Recovered/Resolved]
